FAERS Safety Report 17841561 (Version 1)
Quarter: 2020Q2

REPORT INFORMATION
  Report Type: Report from Study
  Country: CA (occurrence: CA)
  Receive Date: 20200529
  Receipt Date: 20200529
  Transmission Date: 20200714
  Serious: Yes (Hospitalization)
  Sender: FDA-Public Use
  Company Number: CA-EISAI MEDICAL RESEARCH-EC-2020-068347

PATIENT
  Age: 70 Year
  Sex: Male

DRUGS (1)
  1. LENVIMA [Suspect]
     Active Substance: LENVATINIB
     Indication: THYROID CANCER
     Route: 048
     Dates: start: 20191125, end: 20200522

REACTIONS (13)
  - Abdominal pain lower [Unknown]
  - Back pain [Unknown]
  - Fatigue [Recovering/Resolving]
  - Pain in extremity [Unknown]
  - Diarrhoea [Recovered/Resolved]
  - Blood pressure fluctuation [Unknown]
  - Abdominal pain upper [Unknown]
  - Eructation [Unknown]
  - Hypertension [Not Recovered/Not Resolved]
  - Decreased appetite [Recovering/Resolving]
  - Constipation [Not Recovered/Not Resolved]
  - Arthralgia [Unknown]
  - Asthenia [Unknown]

NARRATIVE: CASE EVENT DATE: 201912
